FAERS Safety Report 4930849-8 (Version None)
Quarter: 2006Q1

REPORT INFORMATION
  Report Type: 
  Country: None (occurrence: None)
  Receive Date: 20060302
  Receipt Date: 20060222
  Transmission Date: 20060701
  Serious: Yes (Disabling, Congenital Anomaly, Other)
  Sender: FDA-Public Use
  Company Number: CA-BOEHRINGER INGELHEIM PHARMACEUTICALS, INC.-2006-BP-02259RO

PATIENT
  Sex: Male

DRUGS (6)
  1. FLUCONAZOLE [Suspect]
  2. METHADONE [Suspect]
  3. NEVIRAPINE [Suspect]
  4. EFAVIRENZ [Suspect]
  5. PENTAMIDINE [Suspect]
  6. SEPTRA [Suspect]

REACTIONS (13)
  - BACTERAEMIA [None]
  - CONVULSION [None]
  - CRANIOSYNOSTOSIS [None]
  - DEAFNESS [None]
  - DEAFNESS BILATERAL [None]
  - DEVELOPMENTAL DELAY [None]
  - DRUG WITHDRAWAL SYNDROME [None]
  - FACIAL DYSMORPHISM [None]
  - JOINT CONTRACTURE [None]
  - PNEUMONIA STREPTOCOCCAL [None]
  - PREMATURE CLOSURE OF CRANIAL SUTURES [None]
  - RENAL DISORDER [None]
  - RENAL TUBULAR DISORDER [None]
